FAERS Safety Report 20901511 (Version 1)
Quarter: 2022Q2

REPORT INFORMATION
  Report Type: Spontaneous
  Country: None (occurrence: US)
  Receive Date: 20220601
  Receipt Date: 20220601
  Transmission Date: 20220720
  Serious: No
  Sender: FDA-Public Use
  Company Number: US-HILL DERMACEUTICALS, INC.-2129375

PATIENT
  Age: 61 Year
  Sex: Male

DRUGS (1)
  1. TOLAK [Suspect]
     Active Substance: FLUOROURACIL
     Indication: Actinic keratosis
     Route: 061
     Dates: start: 20220112, end: 20220114

REACTIONS (4)
  - Burning sensation [Unknown]
  - Eye swelling [Unknown]
  - Application site vesicles [Unknown]
  - Skin weeping [Unknown]

NARRATIVE: CASE EVENT DATE: 20220115
